FAERS Safety Report 19990821 (Version 1)
Quarter: 2021Q4

REPORT INFORMATION
  Report Type: Spontaneous
  Country: US (occurrence: US)
  Receive Date: 20211022
  Receipt Date: 20211022
  Transmission Date: 20220303
  Serious: Yes (Death)
  Sender: FDA-Public Use
  Company Number: None

PATIENT
  Sex: Male

DRUGS (18)
  1. RYDAPT [Suspect]
     Active Substance: MIDOSTAURIN
     Indication: Systemic mastocytosis
     Route: 048
     Dates: start: 20210910
  2. ASPIRIN LOW TAB [Concomitant]
  3. ATORVASTATIN [Concomitant]
     Active Substance: ATORVASTATIN
  4. BUPROPN HCL TAB [Concomitant]
  5. CARBIDOPA TAB [Concomitant]
  6. CLOPIDOGREL TAB [Concomitant]
  7. EPINEPHRINE INJ [Concomitant]
  8. EZEIMIBE TAB [Concomitant]
  9. LEVOFLOXACIN TAB [Concomitant]
  10. MELATONIN TAB [Concomitant]
  11. MUCINEX TAB [Concomitant]
  12. NAPROXEN SOD TAB [Concomitant]
  13. OLANZAPINE TAB [Concomitant]
  14. POLYETHYLENE GLYCOLS [Concomitant]
     Active Substance: POLYETHYLENE GLYCOLS
  15. PRESERVISION CAP AREDS [Concomitant]
  16. RYDAPT [Concomitant]
     Active Substance: MIDOSTAURIN
  17. SODIUM CHLORIDE [Concomitant]
     Active Substance: SODIUM CHLORIDE
  18. SOTALOL HCL TAB [Concomitant]

REACTIONS (1)
  - Death [None]
